FAERS Safety Report 11274608 (Version 1)
Quarter: 2015Q3

REPORT INFORMATION
  Report Type: Spontaneous
  Country: CA (occurrence: CA)
  Receive Date: 20150715
  Receipt Date: 20150715
  Transmission Date: 20151125
  Serious: Yes (Other)
  Sender: FDA-Public Use
  Company Number: CA-MERCK-1507CAN005539

PATIENT
  Sex: Female

DRUGS (1)
  1. INTRON A [Suspect]
     Active Substance: INTERFERON ALFA-2B
     Indication: MALIGNANT MELANOMA
     Dosage: 10 MILLION IU, THREE TIMES PER WEEK FOR 48 WEEKS
     Route: 058
     Dates: start: 20140721

REACTIONS (2)
  - Drug ineffective [Not Recovered/Not Resolved]
  - Malignant melanoma [Not Recovered/Not Resolved]
